FAERS Safety Report 8623064-8 (Version None)
Quarter: 2012Q3

REPORT INFORMATION
  Report Type: 
  Country: None (occurrence: None)
  Receive Date: 20120827
  Receipt Date: 20120822
  Transmission Date: 20120928
  Serious: Yes (Hospitalization)
  Sender: FDA-Public Use
  Company Number: US-JNJFOC-20120810650

PATIENT
  Sex: Male
  Weight: 80.9 kg

DRUGS (5)
  1. IRON [Concomitant]
  2. REMICADE [Suspect]
     Indication: CROHN'S DISEASE
     Route: 042
     Dates: start: 20120711
  3. REMICADE [Suspect]
     Route: 042
     Dates: start: 20100721
  4. CALCIUM WITH VITAMIN D [Concomitant]
  5. MULTI-VITAMINS [Concomitant]

REACTIONS (4)
  - GASTROENTERITIS VIRAL [None]
  - HYPONATRAEMIA [None]
  - SUBCUTANEOUS ABSCESS [None]
  - DEHYDRATION [None]
